FAERS Safety Report 12077731 (Version 2)
Quarter: 2016Q2

REPORT INFORMATION
  Report Type: Spontaneous
  Country: IT (occurrence: IT)
  Receive Date: 20160215
  Receipt Date: 20160616
  Transmission Date: 20160815
  Serious: Yes (Other)
  Sender: FDA-Public Use
  Company Number: PHHY2016IT016208

PATIENT
  Age: 0 Year
  Weight: 2.9 kg

DRUGS (5)
  1. TASIGNA [Suspect]
     Active Substance: NILOTINIB
     Indication: FOETAL EXPOSURE DURING PREGNANCY
     Dosage: MOTHER DOSE:400 MG, QD
     Route: 064
     Dates: start: 20100101, end: 20150728
  2. CIPRALEX [Suspect]
     Active Substance: ESCITALOPRAM OXALATE
     Indication: FOETAL EXPOSURE DURING PREGNANCY
     Dosage: MOTHER DOSE:1 DF, QD (ONE POSOLOGIC UNIT) FOR 11 YEARS
     Route: 064
  3. CARBOLITHIUM [Suspect]
     Active Substance: LITHIUM CARBONATE
     Indication: FOETAL EXPOSURE DURING PREGNANCY
     Dosage: MOTHER DOSE:750 MG, QD (FOR 11 YEARS)
     Route: 064
  4. TAVOR//LORAZEPAM [Suspect]
     Active Substance: LORAZEPAM
     Indication: FOETAL EXPOSURE DURING PREGNANCY
     Dosage: MOTHER DOSE:1 DF, QD (ONE POSOLOGIC UNIT) (FOR 11 YEARS)
     Route: 064
  5. TIROSINT [Suspect]
     Active Substance: LEVOTHYROXINE SODIUM
     Indication: FOETAL EXPOSURE DURING PREGNANCY
     Dosage: MOTHER DOSE:150 UG, QD (FOR 17 YEARS)
     Route: 064

REACTIONS (5)
  - Univentricular heart [Not Recovered/Not Resolved]
  - Foetal exposure during pregnancy [Not Recovered/Not Resolved]
  - Aorta hypoplasia [Not Recovered/Not Resolved]
  - Foetal malformation [Not Recovered/Not Resolved]
  - Mitral valve atresia [Not Recovered/Not Resolved]

NARRATIVE: CASE EVENT DATE: 20151210
